FAERS Safety Report 8131177-2 (Version None)
Quarter: 2012Q1

REPORT INFORMATION
  Report Type: 
  Country: None (occurrence: None)
  Receive Date: 20120213
  Receipt Date: 20120202
  Transmission Date: 20120608
  Serious: Yes (Hospitalization, Other)
  Sender: FDA-Public Use
  Company Number: CA-JNJFOC-20120201841

PATIENT
  Sex: Female
  Weight: 48 kg

DRUGS (2)
  1. REMICADE [Suspect]
     Indication: CROHN'S DISEASE
     Route: 042
     Dates: start: 20090101
  2. IMURAN [Concomitant]
     Dosage: HALF TABLET DAILY
     Route: 065

REACTIONS (2)
  - INTESTINAL RESECTION [None]
  - FISTULA [None]
